FAERS Safety Report 8832416 (Version 1)
Quarter: 2012Q4

REPORT INFORMATION
  Report Type: Spontaneous
  Country: CA (occurrence: None)
  Receive Date: 20121005
  Receipt Date: 20121005
  Transmission Date: 20130627
  Serious: Yes (Other)
  Sender: FDA-Public Use
  Company Number: FK201202835

PATIENT
  Sex: Female

DRUGS (2)
  1. ACYCLOVIR SODIUM (MANUFACTURER UNKNOWN) (ACYCLOVIR SODIUM) (ACYCLOVIR SODIUM) [Suspect]
     Indication: HERPES ZOSTER
  2. PREDNISONE [Concomitant]

REACTIONS (3)
  - Myoclonus [None]
  - Depressed level of consciousness [None]
  - Acute febrile neutrophilic dermatosis [None]
